FAERS Safety Report 12055548 (Version 2)
Quarter: 2017Q1

REPORT INFORMATION
  Report Type: Spontaneous
  Country: US (occurrence: US)
  Receive Date: 20160209
  Receipt Date: 20170131
  Transmission Date: 20170428
  Serious: No
  Sender: FDA-Public Use
  Company Number: US-ABBVIE-15P-163-1511970-00

PATIENT
  Sex: Female

DRUGS (1)
  1. HUMIRA [Suspect]
     Active Substance: ADALIMUMAB
     Indication: PRODUCT USED FOR UNKNOWN INDICATION
     Route: 058

REACTIONS (10)
  - Pain [Unknown]
  - Guttate psoriasis [Unknown]
  - Condition aggravated [Recovering/Resolving]
  - Asthma [Unknown]
  - Bacterial infection [Unknown]
  - Musculoskeletal stiffness [Unknown]
  - Nasopharyngitis [Unknown]
  - Dermatitis allergic [Unknown]
  - Eczema [Unknown]
  - Pharyngitis [Unknown]
